FAERS Safety Report 6641578-7 (Version None)
Quarter: 2010Q1

REPORT INFORMATION
  Report Type: 
  Country: None (occurrence: None)
  Receive Date: 20100317
  Receipt Date: 20100317
  Transmission Date: 20100710
  Serious: Yes (Other)
  Sender: FDA-Public Use
  Company Number: None

PATIENT
  Age: 49 Year
  Sex: Female
  Weight: 49.8957 kg

DRUGS (10)
  1. IFOSFAMIDE [Suspect]
     Indication: CENTRAL NERVOUS SYSTEM LYMPHOMA
     Dosage: 965MG Q12 X 10DAYS IV
     Route: 042
     Dates: start: 20100119, end: 20100121
  2. IFOSFAMIDE [Suspect]
     Indication: NEOPLASM MALIGNANT
     Dosage: 965MG Q12 X 10DAYS IV
     Route: 042
     Dates: start: 20100119, end: 20100121
  3. ETOPOSIDE [Concomitant]
  4. ACYCLOVIR [Concomitant]
  5. SERTRALINE [Concomitant]
  6. COTRIM [Concomitant]
  7. LEVOFLOXACIN [Concomitant]
  8. DEXAMETHASONE [Concomitant]
  9. FUROSEMIDE [Concomitant]
  10. RANITIDINE [Concomitant]

REACTIONS (4)
  - CONFUSIONAL STATE [None]
  - MENTAL STATUS CHANGES [None]
  - MOVEMENT DISORDER [None]
  - SPEECH DISORDER [None]
